FAERS Safety Report 7378286-3 (Version None)
Quarter: 2011Q1

REPORT INFORMATION
  Report Type: 
  Country: None (occurrence: None)
  Receive Date: 20110328
  Receipt Date: 20110323
  Transmission Date: 20110831
  Serious: Yes (Hospitalization)
  Sender: FDA-Public Use
  Company Number: JP-ABBOTT-11P-087-0713944-00

PATIENT
  Sex: Male

DRUGS (9)
  1. LOPEMIN [Concomitant]
     Indication: DIARRHOEA
     Dates: start: 20100108, end: 20100127
  2. TRUVADA [Suspect]
     Indication: HIV INFECTION
     Route: 048
     Dates: start: 20100108, end: 20100127
  3. TRUVADA [Suspect]
     Route: 048
     Dates: start: 20100208
  4. RITONAVIR [Suspect]
     Indication: HIV INFECTION
     Route: 048
     Dates: start: 20100108, end: 20100127
  5. ISENTRESS [Concomitant]
     Indication: HIV INFECTION
     Route: 048
     Dates: start: 20100208
  6. EPIVIR [Suspect]
     Indication: HIV INFECTION
     Route: 048
     Dates: start: 20100128, end: 20100207
  7. STOCRIN [Suspect]
     Indication: HIV INFECTION
     Dates: start: 20100128, end: 20100207
  8. PREZISTANAIVE [Suspect]
     Indication: HIV INFECTION
     Route: 048
     Dates: start: 20100108, end: 20100127
  9. ZERIT [Suspect]
     Indication: HIV INFECTION
     Route: 048
     Dates: start: 20100128, end: 20100207

REACTIONS (5)
  - RASH [None]
  - PLATELET COUNT DECREASED [None]
  - HEPATIC FUNCTION ABNORMAL [None]
  - SALMONELLA SEPSIS [None]
  - PYREXIA [None]
